FAERS Safety Report 5525972-3 (Version None)
Quarter: 2007Q4

REPORT INFORMATION
  Report Type: 
  Country: None (occurrence: None)
  Receive Date: 20071126
  Receipt Date: 20071116
  Transmission Date: 20080405
  Serious: Yes (Life-Threatening, Hospitalization, Other)
  Sender: FDA-Public Use
  Company Number: GB-ABBOTT-07P-167-0421656-00

PATIENT
  Sex: Female

DRUGS (8)
  1. FENOFIBRATE (MICRONIZED) [Suspect]
     Indication: BLOOD CHOLESTEROL
     Route: 048
     Dates: end: 20070926
  2. AMLODIPINE [Concomitant]
     Indication: BLOOD PRESSURE
     Route: 048
  3. ALFACALCIDOL [Concomitant]
     Indication: CALCIUM DEFICIENCY
     Route: 048
  4. LEVOTHYROXINE SODIUM [Concomitant]
     Indication: THYROID FUNCTION TEST ABNORMAL
     Route: 048
  5. CALCIUM CARBONATE [Concomitant]
     Indication: MINERAL SUPPLEMENTATION
     Route: 048
  6. OMEPRAZOLE [Concomitant]
     Indication: PROPHYLAXIS AGAINST GASTROINTESTINAL ULCER
     Route: 048
  7. SALBUTAMOL MDI 100MG [Concomitant]
     Indication: BRONCHOSPASM
     Route: 055
  8. SERETIDE [Concomitant]
     Indication: STEROID THERAPY
     Route: 055

REACTIONS (4)
  - BRONCHIOLOALVEOLAR CARCINOMA [None]
  - CHEST PAIN [None]
  - COMPUTERISED TOMOGRAM ABNORMAL [None]
  - LUNG CONSOLIDATION [None]
